FAERS Safety Report 5113349-4 (Version None)
Quarter: 2006Q3

REPORT INFORMATION
  Report Type: 
  Country: None (occurrence: None)
  Receive Date: 20060920
  Receipt Date: 20060911
  Transmission Date: 20061208
  Serious: Yes (Disabling, Other)
  Sender: FDA-Public Use
  Company Number: 2006110035

PATIENT
  Age: 75 Year
  Sex: Male
  Weight: 82.5547 kg

DRUGS (6)
  1. LIPITOR [Suspect]
     Indication: STENT PLACEMENT
     Dosage: 10 MG (10 MG, 1 IN 1 D), ORAL
     Route: 048
     Dates: start: 20030901
  2. CELEBREX [Suspect]
     Dosage: 200 MG (200 MG, 1 IN 1 D), ORAL
     Route: 048
     Dates: start: 20060601
  3. NORVASC [Concomitant]
  4. ASPIRIN [Concomitant]
  5. LISINOPRIL W/HYDROCHLOROTHIAZIDE (HYDROCHLOROTHIAZIDE, LISINOPRIL) [Concomitant]
  6. RANITIDINE [Concomitant]

REACTIONS (5)
  - ARTHRITIS [None]
  - ASTHENIA [None]
  - CONDITION AGGRAVATED [None]
  - DYSSTASIA [None]
  - PAIN IN EXTREMITY [None]
